FAERS Safety Report 4336225-3 (Version None)
Quarter: 2004Q2

REPORT INFORMATION
  Report Type: 
  Country: None (occurrence: None)
  Receive Date: 20040409
  Receipt Date: 20040325
  Transmission Date: 20050107
  Serious: Yes (Hospitalization)
  Sender: FDA-Public Use
  Company Number: 2004001116

PATIENT
  Age: 70 Year
  Sex: Female

DRUGS (18)
  1. LIPITOR [Suspect]
     Indication: HYPERLIPIDAEMIA
     Dosage: 5 MG DAILY, ORAL
     Route: 048
     Dates: start: 20030709, end: 20031215
  2. CLARITHROMYCIN [Suspect]
     Indication: BRONCHITIS ACUTE
     Dosage: 400 MG DAILY, ORAL
     Route: 048
     Dates: start: 20021205, end: 20031215
  3. ALPRAZOLAM [Suspect]
     Indication: ANXIETY DISORDER
     Dosage: 0.4 MG DAILY, ORAL
     Route: 048
     Dates: start: 20030808, end: 20031215
  4. VITAMIN B COMPLEX CAP [Suspect]
     Indication: ANOREXIA
     Dosage: DAILY, ORAL
     Route: 048
     Dates: start: 20031125, end: 20031215
  5. FOMINOBEN HYDROCHLORIDE (FOMINOBEN HYDROCHLORIDE) [Suspect]
     Indication: BRONCHITIS ACUTE
     Dosage: 480 MG, DAILY, ORAL
     Route: 048
     Dates: start: 20031125, end: 20031215
  6. AMBROXOL HYDROCHLORIDE (AMBROXOL HYDROCHLORIDE) [Suspect]
     Indication: BRONCHITIS ACUTE
     Dosage: 45 MG DAILY, ORAL
     Route: 048
     Dates: start: 20031125, end: 20031215
  7. BUFFERIN [Concomitant]
  8. NITRENDIPINE (NITRENDIPINE) [Concomitant]
  9. CONJUGATED ESTROGENS [Concomitant]
  10. ETIZOLAM (ETIZOLAM) [Concomitant]
  11. IFENPRODIL TARTRATE (IFENPRODIL TARTRATE) [Concomitant]
  12. PAROXETINE HCL [Concomitant]
  13. TIPEPIDINE HIBENZATE (TIPEPIDINE HIBENZATE) [Concomitant]
  14. IBUPROFEN [Concomitant]
  15. EPHEDRA (EPHEDRA) [Concomitant]
  16. SALIPARA CODEINE (CODEINE PHOSPHATE, PRUNUS SPP. CORTEX EXTRACT) [Concomitant]
  17. LEVOTHYROXINE SODIUM [Concomitant]
  18. SHOUSEIRYUUTOU (HERBAL EXTRACTS NOS) [Concomitant]

REACTIONS (21)
  - ALANINE AMINOTRANSFERASE INCREASED [None]
  - ANOREXIA [None]
  - ANTIMITOCHONDRIAL ANTIBODY POSITIVE [None]
  - ANTINUCLEAR ANTIBODY POSITIVE [None]
  - ANXIETY [None]
  - ASPARTATE AMINOTRANSFERASE INCREASED [None]
  - BLOOD ALKALINE PHOSPHATASE INCREASED [None]
  - BLOOD CHOLESTEROL INCREASED [None]
  - BLOOD PRESSURE SYSTOLIC INCREASED [None]
  - BRONCHITIS ACUTE [None]
  - DIFFICULTY IN WALKING [None]
  - FACE OEDEMA [None]
  - FEELING ABNORMAL [None]
  - HAEMATOCRIT DECREASED [None]
  - HEPATIC FUNCTION ABNORMAL [None]
  - HYPERVENTILATION [None]
  - NASOPHARYNGITIS [None]
  - NEUROLOGICAL SYMPTOM [None]
  - RASH [None]
  - VOMITING [None]
  - WHITE BLOOD CELL COUNT DECREASED [None]
